FAERS Safety Report 16686033 (Version 1)
Quarter: 2019Q3

REPORT INFORMATION
  Report Type: Spontaneous
  Country: FR (occurrence: FR)
  Receive Date: 20190809
  Receipt Date: 20190809
  Transmission Date: 20191004
  Serious: Yes (Hospitalization)
  Sender: FDA-Public Use
  Company Number: FR-ACCORD-150598

PATIENT
  Age: 76 Year
  Sex: Female
  Weight: 85 kg

DRUGS (10)
  1. NIVESTIM [Concomitant]
     Active Substance: FILGRASTIM
  2. PREDNISONE. [Concomitant]
     Active Substance: PREDNISONE
  3. FENTANYL. [Concomitant]
     Active Substance: FENTANYL
  4. NAVELBIN [Suspect]
     Active Substance: VINORELBINE TARTRATE
     Indication: LUNG CANCER METASTATIC
     Dosage: STRENGTH 10 MG/1 ML,SOLUTION FOR INJECTION IN VIAL
     Route: 042
     Dates: start: 20190712, end: 20190712
  5. LEVOTHYROX [Concomitant]
     Active Substance: LEVOTHYROXINE
     Dosage: STRENGTH 50 MICROGRAMS, SCORED TABLET
  6. CARBOPLATIN. [Suspect]
     Active Substance: CARBOPLATIN
     Indication: LUNG CANCER METASTATIC
     Route: 042
     Dates: start: 20190705, end: 20190705
  7. MIANSERIN/MIANSERIN HYDROCHLORIDE [Concomitant]
  8. PREGABALIN. [Concomitant]
     Active Substance: PREGABALIN
  9. TRIMEBUTINE [Concomitant]
     Active Substance: TRIMEBUTINE
  10. BROMAZEPAM [Concomitant]
     Active Substance: BROMAZEPAM

REACTIONS (3)
  - Asthenia [Not Recovered/Not Resolved]
  - Febrile bone marrow aplasia [Not Recovered/Not Resolved]
  - Diarrhoea [Recovered/Resolved]

NARRATIVE: CASE EVENT DATE: 20190714
